FAERS Safety Report 12449198 (Version 1)
Quarter: 2016Q2

REPORT INFORMATION
  Report Type: Spontaneous
  Country: CA (occurrence: CA)
  Receive Date: 20160608
  Receipt Date: 20160608
  Transmission Date: 20160815
  Serious: Yes (Hospitalization)
  Sender: FDA-Public Use
  Company Number: CA-ACTELION-A-NJ2016-137238

PATIENT
  Age: 66 Year
  Sex: Female
  Weight: 63.49 kg

DRUGS (8)
  1. OPSUMIT [Suspect]
     Active Substance: MACITENTAN
     Indication: PULMONARY HYPERTENSION
     Route: 048
  2. BIOTIN [Concomitant]
     Active Substance: BIOTIN
  3. DILTIAZEM [Concomitant]
     Active Substance: DILTIAZEM
  4. CARIPUL [Suspect]
     Active Substance: EPOPROSTENOL
     Indication: PULMONARY HYPERTENSION
     Dosage: 30000 NG/L, UNK
     Route: 042
     Dates: start: 20150302
  5. METAMUCIL [Concomitant]
     Active Substance: PLANTAGO SEED
  6. SYNTHROID [Concomitant]
     Active Substance: LEVOTHYROXINE SODIUM
  7. ASA [Concomitant]
     Active Substance: ASPIRIN
  8. FUROSEMIDE. [Concomitant]
     Active Substance: FUROSEMIDE

REACTIONS (2)
  - Sepsis [Recovered/Resolved]
  - Infection [Recovered/Resolved]
